FAERS Safety Report 6611145-X (Version None)
Quarter: 2010Q1

REPORT INFORMATION
  Report Type: 
  Country: None (occurrence: None)
  Receive Date: 20100302
  Receipt Date: 20100302
  Transmission Date: 20100710
  Serious: Yes (Hospitalization)
  Sender: FDA-Public Use
  Company Number: None

PATIENT
  Age: 78 Year
  Sex: Female
  Weight: 73.7 kg

DRUGS (12)
  1. LASIX [Suspect]
     Indication: OEDEMA
     Dosage: 20MG DAILY PO RECENT
     Route: 048
  2. FISH OIL [Concomitant]
  3. M.V.I. [Concomitant]
  4. VIT D [Concomitant]
  5. LIPITOR [Concomitant]
  6. CALCIUM CARB [Concomitant]
  7. IRON [Concomitant]
  8. PLAVIX [Concomitant]
  9. REGLAN [Concomitant]
  10. HYDRALAZINE HCL [Concomitant]
  11. NORVASC [Concomitant]
  12. ISOSORBIDE MON. [Concomitant]

REACTIONS (7)
  - BLOOD POTASSIUM INCREASED [None]
  - BURNING SENSATION [None]
  - CHAPPED LIPS [None]
  - DRUG HYPERSENSITIVITY [None]
  - HYPONATRAEMIA [None]
  - RENAL DISORDER [None]
  - SKIN LESION [None]
